FAERS Safety Report 6577536-0 (Version None)
Quarter: 2010Q1

REPORT INFORMATION
  Report Type: 
  Country: None (occurrence: None)
  Receive Date: 20100211
  Receipt Date: 20100204
  Transmission Date: 20100710
  Serious: Yes (Death)
  Sender: FDA-Public Use
  Company Number: US-CELGENEUS-163-21880-08110198

PATIENT
  Sex: Male

DRUGS (12)
  1. REVLIMID [Suspect]
     Indication: NON-HODGKIN'S LYMPHOMA
     Route: 048
     Dates: start: 20080925, end: 20081020
  2. DEXAMETHASONE [Suspect]
     Indication: DRUG USE FOR UNKNOWN INDICATION
     Route: 065
     Dates: start: 20080928, end: 20081019
  3. FISH OIL [Concomitant]
     Route: 065
     Dates: end: 20081111
  4. FUROSEMIDE [Concomitant]
     Route: 065
     Dates: end: 20081111
  5. IBUPROFEN [Concomitant]
     Indication: PAIN
     Route: 065
     Dates: end: 20081111
  6. KLOR-CON [Concomitant]
     Indication: PROPHYLAXIS
     Route: 065
     Dates: end: 20081111
  7. METOLAZONE [Concomitant]
     Route: 065
     Dates: end: 20081111
  8. MULTI-VITAMINS [Concomitant]
     Route: 065
     Dates: end: 20081111
  9. SELENIUM [Concomitant]
     Route: 065
     Dates: end: 20081111
  10. MEGACE [Concomitant]
     Route: 065
     Dates: start: 20081009, end: 20081111
  11. ASPIRIN [Concomitant]
     Indication: PROPHYLAXIS
     Route: 065
     Dates: start: 20080926, end: 20081020
  12. CLARITIN [Concomitant]
     Indication: RASH
     Dosage: DOSE PACK
     Route: 065
     Dates: start: 20081014, end: 20081106

REACTIONS (1)
  - RESPIRATORY FAILURE [None]
